FAERS Safety Report 8251470-2 (Version None)
Quarter: 2012Q2

REPORT INFORMATION
  Report Type: 
  Country: None (occurrence: None)
  Receive Date: 20120402
  Receipt Date: 20120327
  Transmission Date: 20120825
  Serious: Yes (Other)
  Sender: FDA-Public Use
  Company Number: US-ASTRAZENECA-2012SE20741

PATIENT
  Age: 28 Year
  Sex: Female

DRUGS (1)
  1. SEROQUEL XR [Suspect]
     Route: 048

REACTIONS (5)
  - CARDIAC VALVE DISEASE [None]
  - INSOMNIA [None]
  - FLASHBACK [None]
  - CONVULSION [None]
  - INTENTIONAL DRUG MISUSE [None]
